FAERS Safety Report 8132291-8 (Version None)
Quarter: 2012Q1

REPORT INFORMATION
  Report Type: 
  Country: None (occurrence: None)
  Receive Date: 20120103
  Receipt Date: 20110919
  Transmission Date: 20120608
  Serious: No
  Sender: FDA-Public Use
  Company Number: AE-2011-001593

PATIENT
  Age: 51 Year
  Sex: Female
  Weight: 85.7298 kg

DRUGS (5)
  1. XANAX [Concomitant]
  2. INCIVEK [Suspect]
     Dosage: 2250 MG (750 MG, 3 IN 1 D),ORAL
     Route: 048
     Dates: start: 20110904
  3. RIBAVIRIN [Concomitant]
  4. PEGASYS [Concomitant]
  5. NEXIUM [Concomitant]

REACTIONS (3)
  - DRUG DOSE OMISSION [None]
  - FAECES HARD [None]
  - HAEMORRHOIDAL HAEMORRHAGE [None]
